FAERS Safety Report 8161718-0 (Version None)
Quarter: 2012Q1

REPORT INFORMATION
  Report Type: 
  Country: None (occurrence: None)
  Receive Date: 20120224
  Receipt Date: 20110125
  Transmission Date: 20120608
  Serious: No
  Sender: FDA-Public Use
  Company Number: US-BRISTOL-MYERS SQUIBB COMPANY-15523343

PATIENT
  Age: 87 Year
  Sex: Female

DRUGS (7)
  1. METFORMIN HCL [Suspect]
     Indication: DIABETES MELLITUS
     Dosage: FOR YEARS
  2. VITAMIN D [Concomitant]
  3. COREG [Concomitant]
  4. WARFARIN SODIUM [Concomitant]
  5. LISINOPRIL [Concomitant]
  6. GLYBURIDE [Suspect]
     Indication: DIABETES MELLITUS
     Dosage: FOR YEARS
  7. FUROSEMIDE [Concomitant]

REACTIONS (1)
  - RENAL IMPAIRMENT [None]
